FAERS Safety Report 5795414-1 (Version None)
Quarter: 2008Q2

REPORT INFORMATION
  Report Type: 
  Country: None (occurrence: None)
  Receive Date: 20080626
  Receipt Date: 20080611
  Transmission Date: 20081010
  Serious: Yes (Hospitalization)
  Sender: FDA-Public Use
  Company Number: 2008AL005396

PATIENT
  Age: 59 Year
  Sex: Male
  Weight: 120.6568 kg

DRUGS (12)
  1. DIGOXIN [Suspect]
     Indication: CARDIAC HYPERTROPHY
     Dosage: 0.25MG DAILY PO
     Route: 048
     Dates: start: 20080324, end: 20080417
  2. ASPIRIN [Concomitant]
  3. NIASPAN [Concomitant]
  4. VYTORIN [Concomitant]
  5. GLIMEPIRIDE [Concomitant]
  6. GLYBURIDE [Concomitant]
  7. LASIX [Concomitant]
  8. BUPROPION HCL [Concomitant]
  9. POTASSIUM CHLORIDE [Concomitant]
  10. ALLOPURINOL [Concomitant]
  11. COREG [Concomitant]
  12. MULTI-VITAMIN [Concomitant]

REACTIONS (7)
  - ASTHENIA [None]
  - DEHYDRATION [None]
  - DISORIENTATION [None]
  - LOSS OF CONSCIOUSNESS [None]
  - MALAISE [None]
  - THERAPEUTIC AGENT TOXICITY [None]
  - VOMITING [None]
